FAERS Safety Report 24730039 (Version 8)
Quarter: 2025Q4

REPORT INFORMATION
  Report Type: Report from Study
  Country: AU (occurrence: AU)
  Receive Date: 20241213
  Receipt Date: 20251218
  Transmission Date: 20260117
  Serious: Yes (Hospitalization, Other)
  Sender: TAKEDA
  Company Number: AU-TAKEDA-2024TUS048770

PATIENT
  Age: 75 Year
  Sex: Male

DRUGS (42)
  1. TEDUGLUTIDE [Suspect]
     Active Substance: TEDUGLUTIDE
     Indication: Short-bowel syndrome
     Dosage: 3.8 MILLIGRAM, QD
     Dates: start: 20210921
  2. TEDUGLUTIDE [Suspect]
     Active Substance: TEDUGLUTIDE
  3. TEDUGLUTIDE [Suspect]
     Active Substance: TEDUGLUTIDE
  4. TEDUGLUTIDE [Suspect]
     Active Substance: TEDUGLUTIDE
  5. CHOLECALCIFEROL [Concomitant]
     Active Substance: CHOLECALCIFEROL
     Indication: Supplementation therapy
     Dosage: 1000 INTERNATIONAL UNIT, QD
     Dates: end: 20231219
  6. CHOLECALCIFEROL [Concomitant]
     Active Substance: CHOLECALCIFEROL
     Dosage: 5000 INTERNATIONAL UNIT, QD
     Dates: start: 20231220
  7. ALBUTEROL [Concomitant]
     Active Substance: ALBUTEROL
     Indication: Dyspnoea
     Dosage: 100 MICROGRAM
  8. BETAMETHASONE [Concomitant]
     Active Substance: BETAMETHASONE
     Indication: Rash
     Dosage: UNK
     Route: 061
  9. LORATADINE [Concomitant]
     Active Substance: LORATADINE
     Dosage: 10 MILLIGRAM, QD
  10. METRONIDAZOLE [Concomitant]
     Active Substance: METRONIDAZOLE
     Dosage: 400 MILLIGRAM, BID
     Dates: start: 20240627, end: 202410
  11. ASPIRIN [Concomitant]
     Active Substance: ASPIRIN
     Dosage: 100 MILLIGRAM, QD
  12. CODEINE [Concomitant]
     Active Substance: CODEINE
     Indication: Frequent bowel movements
     Dosage: 30 MILLIGRAM, BID
  13. LOPERAMIDE [Concomitant]
     Active Substance: LOPERAMIDE
     Indication: Diarrhoea
     Dosage: 12 MILLIGRAM, QID
  14. LANSOPRAZOLE [Concomitant]
     Active Substance: LANSOPRAZOLE
     Dosage: 15 MILLIGRAM, QD
     Dates: start: 20250225
  15. ROSUVASTATIN [Concomitant]
     Active Substance: ROSUVASTATIN
     Dosage: 20 MILLIGRAM, QD
  16. METFORMIN [Concomitant]
     Active Substance: METFORMIN HYDROCHLORIDE
     Indication: Type 2 diabetes mellitus
     Dosage: 1000 MILLIGRAM, BID
  17. AMLODIPINE [Concomitant]
     Active Substance: AMLODIPINE BESYLATE
     Indication: Hypertension
     Dosage: 10 MILLIGRAM, QD
  18. ACETAMINOPHEN [Concomitant]
     Active Substance: ACETAMINOPHEN
     Indication: Analgesic therapy
     Dosage: 1000 MILLIGRAM, QID
  19. OXYCODONE [Concomitant]
     Active Substance: OXYCODONE
     Indication: Abdominal pain lower
     Dosage: 10 MILLIGRAM
  20. MAGNESIUM [Concomitant]
     Active Substance: MAGNESIUM
     Indication: Supplementation therapy
     Dosage: 10 MILLIMOLE, QD
  21. MAGNESIUM [Concomitant]
     Active Substance: MAGNESIUM
     Dosage: UNK UNK, QD
  22. DENOSUMAB [Concomitant]
     Active Substance: DENOSUMAB
     Indication: Osteoporosis
     Dosage: 60 MILLIGRAM
  23. B12 [Concomitant]
     Indication: Supplementation therapy
     Dosage: UNK, Q3MONTHS
  24. TAUROLIDINE [Concomitant]
     Active Substance: TAUROLIDINE
     Indication: Prophylaxis
     Dosage: 3 MILLILITER
  25. MAGNESIUM OXIDE [Concomitant]
     Active Substance: MAGNESIUM OXIDE
     Indication: Supplementation therapy
     Dosage: UNK UNK, QD
  26. SODIBIC [Concomitant]
     Indication: Supplementation therapy
     Dosage: 840 MILLIGRAM, BID
  27. USTEKINUMAB [Concomitant]
     Active Substance: USTEKINUMAB
     Indication: Crohn^s disease
     Dosage: 90 MILLIGRAM, Q8WEEKS
     Dates: start: 2023
  28. TAPENTADOL [Concomitant]
     Active Substance: TAPENTADOL
     Indication: Pain
     Dosage: 50 MILLIGRAM
  29. TAPENTADOL [Concomitant]
     Active Substance: TAPENTADOL
     Dosage: 100 MILLIGRAM, BID
     Dates: start: 2024, end: 202410
  30. TAPENTADOL [Concomitant]
     Active Substance: TAPENTADOL
     Dosage: 50 MILLIGRAM, BID
     Dates: start: 202410
  31. SYMBICORT [Concomitant]
     Active Substance: BUDESONIDE\FORMOTEROL FUMARATE DIHYDRATE
     Dosage: UNK UNK, BID
  32. PREDNISOLONE [Concomitant]
     Active Substance: PREDNISOLONE
     Dosage: 15 MILLIGRAM, QD
     Dates: start: 2024, end: 2024
  33. PREDNISOLONE [Concomitant]
     Active Substance: PREDNISOLONE
     Dosage: 8 MILLIGRAM, QD
     Dates: start: 20250227
  34. SIMETHICONE (DIMETHICONE) [Concomitant]
     Active Substance: DIMETHICONE
     Dosage: UNK
  35. PROTAPHANE [Concomitant]
     Active Substance: INSULIN HUMAN
     Indication: Blood glucose abnormal
     Dosage: 26 INTERNATIONAL UNIT, QD
     Dates: start: 20241004
  36. METHOTREXATE [Concomitant]
     Active Substance: METHOTREXATE
     Indication: Polymyalgia rheumatica
     Dosage: 7.5 MILLIGRAM, 1/WEEK
     Dates: start: 20250304, end: 20250522
  37. METHOTREXATE [Concomitant]
     Active Substance: METHOTREXATE
     Dosage: 15 MILLIGRAM, 1/WEEK
     Dates: start: 20250522
  38. FOLIC ACID [Concomitant]
     Active Substance: FOLIC ACID
     Dosage: 5 MILLIGRAM, QOD
     Dates: start: 20250304
  39. GAVISCON [Concomitant]
     Active Substance: ALUMINUM HYDROXIDE\MAGNESIUM CARBONATE
     Indication: Dyspepsia
     Dosage: UNK
  40. EPSOM SALT [Concomitant]
     Active Substance: MAGNESIUM SULFATE
     Dosage: UNK
  41. RESONIUM [Concomitant]
     Active Substance: SODIUM POLYSTYRENE SULFONATE
     Indication: Hyperkalaemia
     Dosage: 15 MILLIGRAM, QD
     Dates: start: 20230424, end: 2023
  42. VITAMIN D [Concomitant]
     Active Substance: VITAMIN D NOS
     Dosage: UNK UNK, SINGLE
     Dates: start: 20241213, end: 20241213

REACTIONS (10)
  - Fall [Recovered/Resolved]
  - Polymyalgia rheumatica [Recovered/Resolved]
  - Ileostomy [Recovered/Resolved]
  - Retinal detachment [Recovered/Resolved]
  - Hypotension [Recovered/Resolved]
  - Dehydration [Recovered/Resolved]
  - Muscle spasms [Not Recovered/Not Resolved]
  - Pleuritic pain [Recovered/Resolved]
  - Bile acid malabsorption [Not Recovered/Not Resolved]
  - Injury [Recovered/Resolved]

NARRATIVE: CASE EVENT DATE: 20231201
